FAERS Safety Report 6990685-8 (Version None)
Quarter: 2010Q3

REPORT INFORMATION
  Report Type: 
  Country: None (occurrence: None)
  Receive Date: 20100916
  Receipt Date: 20100810
  Transmission Date: 20110219
  Serious: Yes (Other)
  Sender: FDA-Public Use
  Company Number: CA-PFIZER INC-2010085848

PATIENT
  Sex: Male
  Weight: 77.098 kg

DRUGS (5)
  1. LYRICA [Suspect]
     Indication: BACK PAIN
     Dosage: 150 MG, AT BEDTIME
     Route: 048
     Dates: start: 20091110, end: 20100508
  2. CRESTOR [Concomitant]
     Indication: LIPIDS INCREASED
     Dosage: 10 MG, 1X/DAY
     Route: 048
     Dates: start: 20080401
  3. LITHIUM [Concomitant]
     Indication: BIPOLAR DISORDER
     Dosage: 750 MG, 1X/DAY
     Route: 048
     Dates: start: 20060101
  4. NEXIUM [Concomitant]
     Indication: GASTROOESOPHAGEAL REFLUX DISEASE
     Dosage: 40 MG, 1X/DAY
     Route: 048
     Dates: start: 20080401
  5. TRAMADOL HYDROCHLORIDE [Concomitant]
     Indication: BACK PAIN
     Dosage: 200 MG, 1X/DAY
     Route: 048
     Dates: start: 20080401

REACTIONS (1)
  - GRAND MAL CONVULSION [None]
